FAERS Safety Report 5857631-1 (Version None)
Quarter: 2008Q3

REPORT INFORMATION
  Report Type: 
  Country: None (occurrence: None)
  Receive Date: 20080825
  Receipt Date: 20080825
  Transmission Date: 20090109
  Serious: Yes (Death, Hospitalization)
  Sender: FDA-Public Use
  Company Number: None

PATIENT
  Age: 64 Year
  Sex: Female
  Weight: 75.2971 kg

DRUGS (4)
  1. RITUXAN [Suspect]
     Indication: LUNG DISORDER
     Dosage: I.V.
     Route: 042
     Dates: start: 20080627
  2. RITUXAN [Suspect]
     Indication: RHEUMATOID ARTHRITIS
     Dosage: I.V.
     Route: 042
     Dates: start: 20080627
  3. RITUXAN [Suspect]
     Indication: LUNG DISORDER
     Dosage: I.V.
     Route: 042
     Dates: start: 20080711
  4. RITUXAN [Suspect]
     Indication: RHEUMATOID ARTHRITIS
     Dosage: I.V.
     Route: 042
     Dates: start: 20080711

REACTIONS (2)
  - HYPOXIA [None]
  - PNEUMONIA [None]
